FAERS Safety Report 12943238 (Version 2)
Quarter: 2017Q1

REPORT INFORMATION
  Report Type: Spontaneous
  Country: US (occurrence: US)
  Receive Date: 20161115
  Receipt Date: 20170215
  Transmission Date: 20170428
  Serious: No
  Sender: FDA-Public Use
  Company Number: US-GLAXOSMITHKLINE-US2016167300

PATIENT
  Sex: Male

DRUGS (3)
  1. BREO ELLIPTA [Suspect]
     Active Substance: FLUTICASONE FUROATE\VILANTEROL TRIFENATATE
     Indication: ASTHMA
     Dosage: 1 PUFF(S), QD
     Route: 055
  2. GUAIFENESIN. [Concomitant]
     Active Substance: GUAIFENESIN
  3. BUPROPION. [Concomitant]
     Active Substance: BUPROPION

REACTIONS (1)
  - Product use issue [Unknown]
